FAERS Safety Report 17243158 (Version 4)
Quarter: 2020Q1

REPORT INFORMATION
  Report Type: Spontaneous
  Country: US (occurrence: US)
  Receive Date: 20200107
  Receipt Date: 20200207
  Transmission Date: 20200409
  Serious: Yes (Hospitalization, Other)
  Sender: FDA-Public Use
  Company Number: US-SA-2020SA002853

PATIENT
  Age: 72 Year
  Sex: Male

DRUGS (8)
  1. METFORMIN HYDROCHLORIDE. [Suspect]
     Active Substance: METFORMIN HYDROCHLORIDE
     Indication: PRODUCT USED FOR UNKNOWN INDICATION
     Dosage: 3500 MG, UNK
     Route: 065
  2. RIVAROXABAN [Suspect]
     Active Substance: RIVAROXABAN
     Dosage: 140 MG
     Route: 065
  3. RAMIPRIL. [Suspect]
     Active Substance: RAMIPRIL
     Dosage: 35 MG, UNK
     Route: 065
  4. MIDAZOLAM HYDROCHLORIDE. [Concomitant]
     Active Substance: MIDAZOLAM HYDROCHLORIDE
     Indication: HYPERTENSION
  5. PROPAFENONE HYDROCHLORIDE. [Suspect]
     Active Substance: PROPAFENONE HYDROCHLORIDE
     Dosage: 3.15 G
     Route: 065
  6. FLOMAX [Suspect]
     Active Substance: TAMSULOSIN HYDROCHLORIDE
     Indication: PRODUCT USED FOR UNKNOWN INDICATION
     Dosage: 5.6 MG
     Route: 065
  7. LEVOTHYROXINE SODIUM. [Suspect]
     Active Substance: LEVOTHYROXINE SODIUM
     Dosage: 959 UG
  8. FENTANYL. [Concomitant]
     Active Substance: FENTANYL
     Indication: HYPERTENSION

REACTIONS (9)
  - Electrocardiogram QRS complex prolonged [Recovered/Resolved]
  - Mental status changes [Recovered/Resolved]
  - Atrioventricular block first degree [Recovered/Resolved]
  - Bradycardia [Recovered/Resolved]
  - Ventricular tachycardia [Recovered/Resolved]
  - Apraxia [Recovered/Resolved]
  - Accidental overdose [Unknown]
  - Generalised tonic-clonic seizure [Recovered/Resolved]
  - Speech disorder [Recovered/Resolved]
